FAERS Safety Report 17983326 (Version 2)
Quarter: 2020Q3

REPORT INFORMATION
  Report Type: Spontaneous
  Country: JP (occurrence: JP)
  Receive Date: 20200706
  Receipt Date: 20200709
  Transmission Date: 20201103
  Serious: Yes (Other)
  Sender: FDA-Public Use
  Company Number: JP-ROCHE-2635954

PATIENT
  Age: 62 Year
  Sex: Female

DRUGS (1)
  1. AVASTIN [Suspect]
     Active Substance: BEVACIZUMAB
     Indication: DIFFUSE LARGE B-CELL LYMPHOMA
     Route: 041

REACTIONS (3)
  - Off label use [Unknown]
  - B-cell lymphoma [Unknown]
  - Intentional product use issue [Unknown]
